FAERS Safety Report 6532954-1 (Version None)
Quarter: 2010Q1

REPORT INFORMATION
  Report Type: 
  Country: None (occurrence: None)
  Receive Date: 20100111
  Receipt Date: 20100107
  Transmission Date: 20100710
  Serious: Yes (Hospitalization, Other)
  Sender: FDA-Public Use
  Company Number: ES-BAYER-200923526GPV

PATIENT
  Age: 41 Year
  Sex: Male
  Weight: 75 kg

DRUGS (13)
  1. CAMPATH [Suspect]
     Indication: PROPHYLAXIS AGAINST GRAFT VERSUS HOST DISEASE
     Route: 042
     Dates: start: 20090430, end: 20090504
  2. FLUDARABINE [Suspect]
     Indication: PROPHYLAXIS AGAINST GRAFT VERSUS HOST DISEASE
     Route: 065
  3. MELPHALAN HYDROCHLORIDE [Suspect]
     Indication: PROPHYLAXIS AGAINST GRAFT VERSUS HOST DISEASE
     Route: 065
  4. TPN [Concomitant]
     Route: 042
     Dates: start: 20090604
  5. VANCOMYCIN [Concomitant]
     Indication: FEBRILE NEUTROPENIA
     Route: 042
     Dates: start: 20090616
  6. PIPERACILLIN AND TAZOBACTAM [Concomitant]
     Indication: FEBRILE NEUTROPENIA
     Route: 042
     Dates: start: 20090614
  7. CICLOSPORINE A [Concomitant]
     Indication: PROPHYLAXIS AGAINST GRAFT VERSUS HOST DISEASE
     Route: 042
     Dates: start: 20090609
  8. OMEPRAZOLE [Concomitant]
     Indication: GASTRITIS PROPHYLAXIS
     Route: 042
     Dates: start: 20090430
  9. ACICLOVIR [Concomitant]
     Indication: ANTIVIRAL PROPHYLAXIS
     Route: 042
     Dates: start: 20090503
  10. CASPOFUNGIN ACETATE [Concomitant]
     Indication: FEBRILE NEUTROPENIA
     Route: 042
     Dates: start: 20090609
  11. FILGRASTIM [Concomitant]
     Indication: NEUTROPENIA
     Route: 058
     Dates: start: 20090609
  12. AMIKACIN [Concomitant]
     Indication: FEBRILE NEUTROPENIA
     Route: 048
     Dates: start: 20090615
  13. URSODEOXYCHOLIC ACID [Concomitant]
     Indication: HEPATOTOXICITY
     Route: 048
     Dates: start: 20090530

REACTIONS (2)
  - ENGRAFT FAILURE [None]
  - FEBRILE NEUTROPENIA [None]
